FAERS Safety Report 4665781-0 (Version None)
Quarter: 2005Q2

REPORT INFORMATION
  Report Type: 
  Country: None (occurrence: None)
  Receive Date: 20050519
  Receipt Date: 20050512
  Transmission Date: 20051028
  Serious: Yes (Death)
  Sender: FDA-Public Use
  Company Number: 200514151US

PATIENT
  Age: 84 Year
  Sex: Female

DRUGS (2)
  1. AMARYL [Suspect]
     Dosage: DOSE: UNK
  2. CIPRO [Concomitant]

REACTIONS (1)
  - HYPOGLYCAEMIA [None]
